FAERS Safety Report 8470947-8 (Version None)
Quarter: 2012Q2

REPORT INFORMATION
  Report Type: 
  Country: None (occurrence: None)
  Receive Date: 20120627
  Receipt Date: 20120621
  Transmission Date: 20120825
  Serious: Yes (Other)
  Sender: FDA-Public Use
  Company Number: MX-SANOFI-AVENTIS-2011SA031606

PATIENT
  Age: 62 Year
  Sex: Female
  Weight: 75 kg

DRUGS (4)
  1. LANTUS [Suspect]
     Indication: TYPE 2 DIABETES MELLITUS
     Dosage: DOSE: 15-40 IU INCREASED GRADUALLY
     Route: 058
     Dates: start: 20090701, end: 20110101
  2. LANTUS [Suspect]
     Route: 058
     Dates: start: 20110101
  3. METFORMIN HCL [Suspect]
     Route: 048
     Dates: start: 20110101
  4. METFORMIN HCL [Suspect]
     Indication: TYPE 2 DIABETES MELLITUS
     Route: 048
     Dates: start: 20090701, end: 20110101

REACTIONS (4)
  - DIABETIC FOOT [None]
  - HYPERGLYCAEMIA [None]
  - OEDEMA PERIPHERAL [None]
  - PAIN IN EXTREMITY [None]
